FAERS Safety Report 6426131-2 (Version None)
Quarter: 2009Q4

REPORT INFORMATION
  Report Type: 
  Country: None (occurrence: None)
  Receive Date: 20091103
  Receipt Date: 20091103
  Transmission Date: 20100525
  Serious: Yes (Hospitalization)
  Sender: FDA-Public Use
  Company Number: None

PATIENT
  Age: 30 Year
  Sex: Male
  Weight: 108.8 kg

DRUGS (2)
  1. BORTEZOMIB [Suspect]
     Dosage: 1.3 MG/M2 DAY 1, 4, 8, 11 IV
     Route: 042
  2. TIPIFARNIB 300 MG BID [Suspect]
     Dosage: 300 MG BID
     Dates: start: 20091013, end: 20091027

REACTIONS (5)
  - GAIT DISTURBANCE [None]
  - HAEMATOMA [None]
  - PLATELET COUNT DECREASED [None]
  - PROCEDURAL SITE REACTION [None]
  - SPINAL CORD COMPRESSION [None]
